FAERS Safety Report 5235729-9 (Version None)
Quarter: 2007Q1

REPORT INFORMATION
  Report Type: 
  Country: None (occurrence: None)
  Receive Date: 20061208
  Receipt Date: 20060612
  Transmission Date: 20070707
  Serious: Yes (Other)
  Sender: FDA-Public Use
  Company Number: 2006UW12611

PATIENT
  Sex: Male

DRUGS (2)
  1. CRESTOR [Suspect]
     Dosage: 20 MG QD PO
     Route: 048
  2. TOPROL-XL [Concomitant]

REACTIONS (1)
  - GYNAECOMASTIA [None]
